FAERS Safety Report 7713828-7 (Version None)
Quarter: 2011Q3

REPORT INFORMATION
  Report Type: 
  Country: None (occurrence: None)
  Receive Date: 20110826
  Receipt Date: 20110815
  Transmission Date: 20111222
  Serious: Yes (Other)
  Sender: FDA-Public Use
  Company Number: NL-MYLANLABS-2011S1017360

PATIENT
  Sex: Female

DRUGS (4)
  1. PREDNISONE [Suspect]
     Dosage: 0.1 MG/KG/DAY
     Route: 065
  2. PREDNISONE [Suspect]
     Indication: HAEMANGIOMA CONGENITAL
     Dosage: 4 MG/KG/DAY
  3. PROPRANOLOL [Suspect]
     Indication: HAEMANGIOMA CONGENITAL
     Dosage: STARTING DOSAGE OF 1 MG/KG/DAY
     Route: 065
  4. PROPRANOLOL [Suspect]
     Dosage: MAXIMUM DOSAGE OF 2 MG/KG/DAY
     Route: 065

REACTIONS (2)
  - HYPOGLYCAEMIA [None]
  - ADRENAL INSUFFICIENCY [None]
